FAERS Safety Report 9485916 (Version 1)
Quarter: 2013Q3

REPORT INFORMATION
  Report Type: Spontaneous
  Country: US (occurrence: US)
  Receive Date: 20130829
  Receipt Date: 20130829
  Transmission Date: 20140515
  Serious: Yes (Hospitalization, Other)
  Sender: FDA-Public Use
  Company Number: US-SANOFI-AVENTIS-2013SA085240

PATIENT
  Age: 64 Year
  Sex: Male

DRUGS (6)
  1. LANTUS SOLOSTAR [Suspect]
     Indication: DIABETES MELLITUS
     Dosage: DOSE:40 UNIT(S)
     Route: 058
  2. LANTUS SOLOSTAR [Suspect]
     Indication: DIABETES MELLITUS
     Dosage: DOSE:40 UNIT(S)
     Route: 058
  3. NOVOLOG [Suspect]
     Route: 065
  4. LEVEMIR [Suspect]
     Route: 065
  5. SOLOSTAR [Concomitant]
  6. THYROID THERAPY [Concomitant]

REACTIONS (2)
  - Atrial fibrillation [Recovered/Resolved]
  - Neoplasm malignant [Unknown]
